FAERS Safety Report 5136437-5 (Version None)
Quarter: 2006Q4

REPORT INFORMATION
  Report Type: 
  Country: None (occurrence: None)
  Receive Date: 20061027
  Receipt Date: 20060302
  Transmission Date: 20070319
  Serious: No
  Sender: FDA-Public Use
  Company Number: US-BRISTOL-MYERS SQUIBB COMPANY-13301718

PATIENT
  Age: 60 Year
  Sex: Female
  Weight: 55 kg

DRUGS (5)
  1. KENACORT [Suspect]
     Dates: start: 20051201
  2. LEXAPRO [Concomitant]
  3. PRILOSEC [Concomitant]
  4. CLARINEX [Concomitant]
  5. DESYRL [Concomitant]

REACTIONS (1)
  - HYPERSENSITIVITY [None]
